FAERS Safety Report 20459858 (Version 3)
Quarter: 2022Q2

REPORT INFORMATION
  Report Type: Spontaneous
  Country: CA (occurrence: None)
  Receive Date: 20220211
  Receipt Date: 20220422
  Transmission Date: 20220721
  Serious: Yes (Hospitalization, Disabling)
  Sender: FDA-Public Use
  Company Number: CA-ROCHE-3014386

PATIENT
  Age: 53 Year
  Sex: Female

DRUGS (6)
  1. GILENYA [Suspect]
     Active Substance: FINGOLIMOD HYDROCHLORIDE
     Indication: Relapsing-remitting multiple sclerosis
     Route: 048
     Dates: start: 20140801, end: 20171220
  2. GILENYA [Suspect]
     Active Substance: FINGOLIMOD HYDROCHLORIDE
     Indication: Multiple sclerosis
     Route: 065
  3. OCREVUS [Suspect]
     Active Substance: OCRELIZUMAB
     Indication: Product used for unknown indication
     Route: 042
     Dates: start: 20180403
  4. OCREVUS [Suspect]
     Active Substance: OCRELIZUMAB
     Route: 042
     Dates: start: 20180319
  5. OCREVUS [Suspect]
     Active Substance: OCRELIZUMAB
     Route: 041
  6. SOLU-MEDROL [Concomitant]
     Active Substance: METHYLPREDNISOLONE SODIUM SUCCINATE

REACTIONS (21)
  - Aphasia [Recovering/Resolving]
  - Asthenia [Unknown]
  - Ataxia [Unknown]
  - Clumsiness [Unknown]
  - Confusional state [Unknown]
  - Dysarthria [Recovering/Resolving]
  - Dysphagia [Unknown]
  - Fine motor skill dysfunction [Not Recovered/Not Resolved]
  - Gait disturbance [Recovering/Resolving]
  - Hemiparesis [Unknown]
  - Intermittent claudication [Unknown]
  - JC virus CSF test positive [Unknown]
  - Limb discomfort [Recovering/Resolving]
  - Lymphocyte count decreased [Recovering/Resolving]
  - Malaise [Unknown]
  - Monoplegia [Recovering/Resolving]
  - Multiple sclerosis pseudo relapse [Not Recovered/Not Resolved]
  - Muscle spasticity [Unknown]
  - Neurological symptom [Not Recovered/Not Resolved]
  - Progressive multifocal leukoencephalopathy [Recovered/Resolved with Sequelae]
  - Pyrexia [Recovering/Resolving]

NARRATIVE: CASE EVENT DATE: 20170901
